FAERS Safety Report 16572553 (Version 1)
Quarter: 2019Q3

REPORT INFORMATION
  Report Type: Spontaneous
  Country: US (occurrence: US)
  Receive Date: 20190715
  Receipt Date: 20190715
  Transmission Date: 20191004
  Serious: No
  Sender: FDA-Public Use
  Company Number: US-ELI_LILLY_AND_COMPANY-US201907001287

PATIENT
  Sex: Male

DRUGS (2)
  1. GARCINIA CAMBOGIA [CALCIUM;CHROMIUM PICOLINAT [Concomitant]
     Indication: SUPPLEMENTATION THERAPY
     Dosage: 2 DOSAGE FORM, BID
  2. STRATTERA [Suspect]
     Active Substance: ATOMOXETINE HYDROCHLORIDE
     Indication: ATTENTION DEFICIT/HYPERACTIVITY DISORDER
     Dosage: 80 MG, DAILY
     Route: 048

REACTIONS (2)
  - Dyspepsia [Unknown]
  - Oesophageal pain [Unknown]
